FAERS Safety Report 7318384-3 (Version None)
Quarter: 2011Q1

REPORT INFORMATION
  Report Type: 
  Country: None (occurrence: None)
  Receive Date: 20110218
  Receipt Date: 20110218
  Transmission Date: 20110831
  Serious: Yes (Hospitalization)
  Sender: FDA-Public Use
  Company Number: None

PATIENT
  Age: 23 Year
  Sex: Male
  Weight: 66 kg

DRUGS (1)
  1. CLONAZEPAM [Suspect]
     Indication: ANXIETY
     Dosage: 1 MG BID PO
     Route: 048
     Dates: start: 20110211, end: 20110212

REACTIONS (12)
  - MOVEMENT DISORDER [None]
  - ARTHRALGIA [None]
  - HYPOAESTHESIA [None]
  - INTERVERTEBRAL DISC PROTRUSION [None]
  - METASTASIS [None]
  - PARAESTHESIA [None]
  - MYELITIS TRANSVERSE [None]
  - DEMYELINATION [None]
  - NEOPLASM [None]
  - SPINAL CORD OEDEMA [None]
  - INFARCTION [None]
  - ABSCESS [None]
